FAERS Safety Report 8510826-0 (Version None)
Quarter: 2012Q3

REPORT INFORMATION
  Report Type: 
  Country: None (occurrence: None)
  Receive Date: 20120704
  Receipt Date: 20120621
  Transmission Date: 20120928
  Serious: Yes (Other)
  Sender: FDA-Public Use
  Company Number: 2012AP001934

PATIENT
  Age: 63 Year
  Sex: Male

DRUGS (12)
  1. FUROSEMIDE (FUROSEMIDE) [Concomitant]
  2. SILDENAFIL CITRATE [Concomitant]
  3. OMEPRAZOLE [Suspect]
     Indication: PRODUCT USED FOR UNKNOWN INDICATION
     Dates: start: 20120522
  4. LISINOPRIL [Concomitant]
  5. BUDESONIDE [Concomitant]
  6. NICOTINE [Concomitant]
  7. SYMBICORT [Concomitant]
  8. SIMVASTATIN [Concomitant]
  9. CLENIL /00212602/ (BECLOMETASONE DIPROPIONATE) [Concomitant]
  10. PHENYTOIN SODIUM [Concomitant]
  11. RANITIDINE HYDROCHLORIDE [Concomitant]
  12. VARENICLINE (VARENICLINE) [Concomitant]

REACTIONS (3)
  - RASH MACULAR [None]
  - EYE SWELLING [None]
  - OEDEMA MOUTH [None]
